FAERS Safety Report 11254256 (Version 1)
Quarter: 2015Q3

REPORT INFORMATION
  Report Type: Spontaneous
  Country: US (occurrence: None)
  Receive Date: 20150708
  Receipt Date: 20150708
  Transmission Date: 20151125
  Serious: Yes (Hospitalization, Disabling)
  Sender: FDA-Public Use
  Company Number: None

PATIENT
  Age: 57 Year
  Sex: Male
  Weight: 74.84 kg

DRUGS (5)
  1. MARIJUANA [Concomitant]
     Active Substance: CANNABIS SATIVA SUBSP. INDICA TOP
  2. LUVOX [Suspect]
     Active Substance: FLUVOXAMINE MALEATE
  3. CIGARRETTES [Concomitant]
  4. COCCAINE [Concomitant]
  5. CRYSTAL METH [Concomitant]
     Active Substance: METHAMPHETAMINE

REACTIONS (2)
  - Gastrointestinal disorder [None]
  - Mental disorder [None]

NARRATIVE: CASE EVENT DATE: 20140201
